FAERS Safety Report 24745278 (Version 2)
Quarter: 2024Q4

REPORT INFORMATION
  Report Type: Spontaneous
  Country: JP (occurrence: JP)
  Receive Date: 20241217
  Receipt Date: 20241224
  Transmission Date: 20250114
  Serious: Yes (Hospitalization, Other)
  Sender: ALEXION PHARMACEUTICALS
  Company Number: JP-ASTRAZENECA-240141152_064320_P_1

PATIENT
  Age: 56 Year

DRUGS (16)
  1. ANDEXXA [Suspect]
     Active Substance: ANDEXANET ALFA
     Indication: Cerebral haemorrhage
     Dosage: 400 MG IV AT 30 MG/MIN FOLLOWED BY 480 MG IV AT 4 MG/MIN FOR 2 HRS
  2. ANDEXXA [Suspect]
     Active Substance: ANDEXANET ALFA
     Dosage: 400 MG IV AT 30 MG/MIN FOLLOWED BY 480 MG IV AT 4 MG/MIN FOR 2 HRS
     Route: 042
  3. ANDEXXA [Suspect]
     Active Substance: ANDEXANET ALFA
     Dosage: 400 MG IV AT 30 MG/MIN FOLLOWED BY 480 MG IV AT 4 MG/MIN FOR 2 HRS
  4. ANDEXXA [Suspect]
     Active Substance: ANDEXANET ALFA
     Dosage: 400 MG IV AT 30 MG/MIN FOLLOWED BY 480 MG IV AT 4 MG/MIN FOR 2 HRS
     Route: 042
  5. XARELTO [Concomitant]
     Active Substance: RIVAROXABAN
     Dosage: 15 MILLIGRAM, QD
  6. XARELTO [Concomitant]
     Active Substance: RIVAROXABAN
     Dosage: 15 MILLIGRAM, QD
     Route: 048
  7. XARELTO [Concomitant]
     Active Substance: RIVAROXABAN
     Dosage: 15 MILLIGRAM, QD
  8. XARELTO [Concomitant]
     Active Substance: RIVAROXABAN
     Dosage: 15 MILLIGRAM, QD
     Route: 048
  9. WARFARIN [Concomitant]
     Active Substance: WARFARIN
     Dosage: DOSE UNKNOWN
     Route: 065
  10. WARFARIN [Concomitant]
     Active Substance: WARFARIN
     Dosage: DOSE UNKNOWN
     Route: 065
  11. WARFARIN [Concomitant]
     Active Substance: WARFARIN
     Dosage: DOSE UNKNOWN
     Route: 065
  12. WARFARIN [Concomitant]
     Active Substance: WARFARIN
     Dosage: DOSE UNKNOWN
     Route: 065
  13. ASPIRIN [Concomitant]
     Active Substance: ASPIRIN
     Dosage: DOSE UNKNOWN
     Route: 065
  14. ASPIRIN [Concomitant]
     Active Substance: ASPIRIN
     Dosage: DOSE UNKNOWN
     Route: 065
  15. ASPIRIN [Concomitant]
     Active Substance: ASPIRIN
     Dosage: DOSE UNKNOWN
     Route: 065
  16. ASPIRIN [Concomitant]
     Active Substance: ASPIRIN
     Dosage: DOSE UNKNOWN
     Route: 065

REACTIONS (2)
  - Cerebral infarction [Unknown]
  - Cardiac ventricular thrombosis [Recovered/Resolved]
